FAERS Safety Report 22321879 (Version 1)
Quarter: 2023Q2

REPORT INFORMATION
  Report Type: Spontaneous
  Country: GB (occurrence: GB)
  Receive Date: 20230516
  Receipt Date: 20230516
  Transmission Date: 20230722
  Serious: Yes (Hospitalization, Other)
  Sender: FDA-Public Use
  Company Number: None

PATIENT

DRUGS (16)
  1. PREDNISOLONE [Suspect]
     Active Substance: PREDNISOLONE
     Dosage: 1 MG, TID TABLET (1MG 3 EVERY MORNING (OM) (TDD 8MG)5MG 1 OM )
  2. PREDNISOLONE [Suspect]
     Active Substance: PREDNISOLONE
     Dosage: 5 MG, QD TABLET (1MG 3 EVERY MORNING (OM) (TDD 8MG)5MG 1 OM  )
  3. SERTRALINE [Suspect]
     Active Substance: SERTRALINE HYDROCHLORIDE
     Dosage: 50 MG, QD TABLET IN MORNING
  4. ALENDRONIC ACID [Suspect]
     Active Substance: ALENDRONIC ACID
     Dosage: 70 MG, WEEKLY
  5. CELECOXIB [Suspect]
     Active Substance: CELECOXIB
     Dosage: 100 MG, BID
  6. AMLODIPINE [Concomitant]
     Active Substance: AMLODIPINE BESYLATE
     Dosage: 5 MG, QD IN MONRING
  7. ATORVASTATIN [Concomitant]
     Active Substance: ATORVASTATIN
     Dosage: 20 MG, QD (NIGHT)
  8. CYCLIZINE [Concomitant]
     Active Substance: CYCLIZINE
     Dosage: 50 MG, PRN (FOUR TIMES DAILY (QDS))
  9. DERMOL [Concomitant]
     Active Substance: BENZALKONIUM CHLORIDE\CHLORHEXIDINE HYDROCHLORIDE\ISOPROPYL MYRISTATE\PARAFFIN
     Dosage: UNK, PRN (500 LOTION (DERMAL LABORATORIES LTD)  )
  10. CALCIUM CARBONATE\CHOLECALCIFEROL [Concomitant]
     Active Substance: CALCIUM CARBONATE\CHOLECALCIFEROL
     Dosage: 1 DOSAGE FORM, BID (1500MG/400UNIT CHEWABLE TABLETS (TEVA UK LTD))
  11. SERETIDE [Concomitant]
     Active Substance: FLUTICASONE PROPIONATE\SALMETEROL XINAFOATE
     Dosage: PUFF (500 ACCUHALER FLUTICASONE PROPIONATE 500MICROGRAMS/DOSE / SALMETEROL 50MICROGRAMS/DOSE)
     Route: 055
  12. LANSOPRAZOLE [Concomitant]
     Active Substance: LANSOPRAZOLE
     Dosage: 30 MG, BID
  13. ALBUTEROL [Concomitant]
     Active Substance: ALBUTEROL
     Dosage: 200 UG (200MICROGRAMS/DOSE DRY POWDER INHALER )
     Route: 055
  14. POTASSIUM BICARBONATE\SODIUM ALGINATE [Concomitant]
     Active Substance: POTASSIUM BICARBONATE\SODIUM ALGINATE
     Dosage: 10 ML, PRN (FOUR TIMES DAILY (QDS) PEPPERMINT SODIUM ALGINATE 500MG/5ML / POTASSIUM BICARBONATE 100M
  15. ACETAMINOPHEN\CODEINE PHOSPHATE [Concomitant]
     Active Substance: ACETAMINOPHEN\CODEINE PHOSPHATE
     Dosage: UNK, PRN (1-2 FOUR TIMES DAILY (QDS)), 30MG/500MG (AMCO)
  16. VENTOLIN [Concomitant]
     Active Substance: ALBUTEROL SULFATE
     Dosage: 200 UG, PRN (~200MICROGRAMS/DOSE ACCUHALER  )
     Route: 055

REACTIONS (1)
  - Oesophagitis [Unknown]
